FAERS Safety Report 7672843-2 (Version None)
Quarter: 2011Q3

REPORT INFORMATION
  Report Type: 
  Country: None (occurrence: None)
  Receive Date: 20110809
  Receipt Date: 20110802
  Transmission Date: 20111222
  Serious: Yes (Other)
  Sender: FDA-Public Use
  Company Number: US-ROXANE LABORATORIES, INC.-2011-RO-01098RO

PATIENT
  Age: 10 Year
  Sex: Female
  Weight: 36 kg

DRUGS (8)
  1. METHYLPREDNISOLONE [Suspect]
     Indication: POLYCHONDRITIS
     Route: 058
  2. ETANERCEPT [Suspect]
     Indication: POLYCHONDRITIS
     Route: 058
  3. PREDNISONE [Suspect]
     Indication: POLYCHONDRITIS
  4. ANAKINRA [Suspect]
     Indication: POLYCHONDRITIS
     Dosage: 100 MG
     Route: 058
  5. IMMUNE GLOBULIN NOS [Suspect]
     Indication: POLYCHONDRITIS
     Route: 042
  6. METHOTREXATE [Suspect]
     Indication: POLYCHONDRITIS
     Route: 058
  7. PREDNISONE [Suspect]
     Dosage: 30 MG
  8. INFLIXIMAB [Suspect]
     Indication: POLYCHONDRITIS

REACTIONS (2)
  - CUSHING'S SYNDROME [None]
  - EPIDURAL LIPOMATOSIS [None]
